FAERS Safety Report 18158278 (Version 1)
Quarter: 2020Q3

REPORT INFORMATION
  Report Type: Spontaneous
  Country: US (occurrence: US)
  Receive Date: 20200817
  Receipt Date: 20200817
  Transmission Date: 20201103
  Serious: No
  Sender: FDA-Public Use
  Company Number: US-THERAPEUTICSMD-2020TMD03021

PATIENT
  Sex: Female

DRUGS (1)
  1. BIJUVA [Suspect]
     Active Substance: ESTRADIOL\PROGESTERONE
     Dosage: UNK

REACTIONS (4)
  - Acne cystic [Unknown]
  - Product dose omission issue [Recovered/Resolved]
  - Hot flush [Unknown]
  - Product administration error [Unknown]

NARRATIVE: CASE EVENT DATE: 202007
